FAERS Safety Report 5053618-X (Version None)
Quarter: 2006Q3

REPORT INFORMATION
  Report Type: 
  Country: None (occurrence: None)
  Receive Date: 20060718
  Receipt Date: 20060705
  Transmission Date: 20061208
  Serious: Yes (Hospitalization, Other)
  Sender: FDA-Public Use
  Company Number: PHRM2006FR01979

PATIENT
  Age: 44 Year
  Sex: Male

DRUGS (2)
  1. SANDIMMUNE [Suspect]
     Dates: start: 20060308, end: 20060315
  2. NEORAL [Suspect]
     Route: 048
     Dates: start: 20060315, end: 20060322

REACTIONS (7)
  - CSF TEST ABNORMAL [None]
  - CYTOMEGALOVIRUS ANTIGEN POSITIVE [None]
  - HEADACHE [None]
  - INTRACRANIAL PRESSURE INCREASED [None]
  - NODULE [None]
  - PAPILLOEDEMA [None]
  - VISUAL ACUITY REDUCED [None]
